FAERS Safety Report 5035599-8 (Version None)
Quarter: 2006Q2

REPORT INFORMATION
  Report Type: 
  Country: None (occurrence: None)
  Receive Date: 20060622
  Receipt Date: 20060612
  Transmission Date: 20061013
  Serious: Yes (Hospitalization)
  Sender: FDA-Public Use
  Company Number: NL-2006-014880

PATIENT
  Age: 39 Year
  Sex: Female

DRUGS (1)
  1. ULTRAVIST 300 [Suspect]
     Indication: COMPUTERISED TOMOGRAM ABDOMEN
     Dosage: 100 ML, 1 DOSE
     Dates: start: 20060601, end: 20060601

REACTIONS (4)
  - ABDOMINAL DISTENSION [None]
  - FEELING HOT [None]
  - PRURITUS [None]
  - URTICARIA [None]
